FAERS Safety Report 19058859 (Version 1)
Quarter: 2021Q1

REPORT INFORMATION
  Report Type: Spontaneous
  Country: US (occurrence: US)
  Receive Date: 20210325
  Receipt Date: 20210325
  Transmission Date: 20210420
  Serious: No
  Sender: FDA-Public Use
  Company Number: US-ASCENT PHARMACEUTICALS, INC.-2108443

PATIENT
  Age: 70 Year
  Sex: Female
  Weight: 58.64 kg

DRUGS (1)
  1. OMEGA?3?ACID ETHYL ESTERS. [Suspect]
     Active Substance: OMEGA-3-ACID ETHYL ESTERS
     Indication: HYPERTRIGLYCERIDAEMIA
     Route: 048

REACTIONS (4)
  - Contusion [Unknown]
  - Fatigue [Unknown]
  - Blood pressure decreased [Unknown]
  - Intentional product use issue [Unknown]
